APPROVED DRUG PRODUCT: CIPROFLOXACIN EXTENDED RELEASE
Active Ingredient: CIPROFLOXACIN; CIPROFLOXACIN HYDROCHLORIDE
Strength: 212.6MG;EQ 287.5MG BASE
Dosage Form/Route: TABLET, EXTENDED RELEASE;ORAL
Application: A078712 | Product #001
Applicant: FOSUN PHARMA USA INC
Approved: Dec 11, 2007 | RLD: No | RS: No | Type: DISCN